FAERS Safety Report 5317446-X (Version None)
Quarter: 2007Q2

REPORT INFORMATION
  Report Type: 
  Country: None (occurrence: None)
  Receive Date: 20070503
  Receipt Date: 20070503
  Transmission Date: 20071010
  Serious: Yes (Hospitalization)
  Sender: FDA-Public Use
  Company Number: None

PATIENT
  Age: 51 Year
  Sex: Female
  Weight: 127 kg

DRUGS (1)
  1. WARFARIN SODIUM [Suspect]
     Dosage: 3MG QDAY PO
     Route: 048

REACTIONS (2)
  - CALCIPHYLAXIS [None]
  - SKIN NECROSIS [None]
